FAERS Safety Report 9269868 (Version 1)
Quarter: 2013Q2

REPORT INFORMATION
  Report Type: Spontaneous
  Country: US (occurrence: US)
  Receive Date: 20130503
  Receipt Date: 20130503
  Transmission Date: 20140414
  Serious: Yes (Hospitalization, Other)
  Sender: FDA-Public Use
  Company Number: US-UCBSA-084453

PATIENT
  Age: 80 Year
  Sex: Female

DRUGS (4)
  1. VIMPAT [Suspect]
     Dosage: DOSE: 200 MG
  2. VIMPAT [Suspect]
     Dosage: DOSE: 50
  3. KEPPRA [Suspect]
     Indication: CONVULSION
     Dosage: DRUG STRENGTH: 1000 MG
  4. GENERIC KEPPRA [Suspect]
     Indication: CONVULSION
     Dosage: UNKNOWN DOSE

REACTIONS (5)
  - Convulsion [Unknown]
  - Fall [Unknown]
  - Balance disorder [Unknown]
  - Feeling abnormal [Unknown]
  - Contusion [Unknown]
